FAERS Safety Report 5461704-5 (Version None)
Quarter: 2007Q3

REPORT INFORMATION
  Report Type: 
  Country: None (occurrence: None)
  Receive Date: 20070920
  Receipt Date: 20061204
  Transmission Date: 20080115
  Serious: No
  Sender: FDA-Public Use
  Company Number: A0629915A

PATIENT
  Sex: Female

DRUGS (2)
  1. ABREVA [Suspect]
  2. ZILACTIN [Concomitant]

REACTIONS (4)
  - DEPRESSION [None]
  - FEELING ABNORMAL [None]
  - IMPAIRED HEALING [None]
  - ORAL HERPES [None]
